FAERS Safety Report 14240623 (Version 3)
Quarter: 2018Q1

REPORT INFORMATION
  Report Type: Spontaneous
  Country: BR (occurrence: BR)
  Receive Date: 20171130
  Receipt Date: 20180116
  Transmission Date: 20180508
  Serious: Yes (Other)
  Sender: FDA-Public Use
  Company Number: BR-PFIZER INC-2012031930

PATIENT
  Age: 22 Year
  Sex: Female

DRUGS (2)
  1. ZOLOFT [Suspect]
     Active Substance: SERTRALINE HYDROCHLORIDE
     Indication: MANIA
     Dosage: 50 MG, 1X/DAY
     Route: 048
     Dates: start: 1999
  2. ZOLOFT [Suspect]
     Active Substance: SERTRALINE HYDROCHLORIDE
     Indication: ANXIETY
     Dosage: 200 MG, DAILY (TWO TABLETS OF 100 MG PER DAY)
     Route: 048

REACTIONS (9)
  - Aggression [Unknown]
  - Discomfort [Unknown]
  - Mood altered [Not Recovered/Not Resolved]
  - Insomnia [Unknown]
  - Irritability [Not Recovered/Not Resolved]
  - Drug dependence [Not Recovered/Not Resolved]
  - Intentional product misuse [Unknown]
  - Tachycardia [Unknown]
  - Drug effect incomplete [Unknown]
